FAERS Safety Report 12525908 (Version 1)
Quarter: 2016Q3

REPORT INFORMATION
  Report Type: Spontaneous
  Country: ES (occurrence: ES)
  Receive Date: 20160705
  Receipt Date: 20160705
  Transmission Date: 20161109
  Serious: Yes (Life-Threatening, Hospitalization)
  Sender: FDA-Public Use
  Company Number: ES-ORION CORPORATION ORION PHARMA-ENTC2016-0354

PATIENT
  Age: 84 Year
  Sex: Male

DRUGS (7)
  1. NOVONORM [Suspect]
     Active Substance: REPAGLINIDE
     Indication: TYPE 2 DIABETES MELLITUS
     Route: 048
     Dates: start: 2016, end: 201606
  2. ROLPRYNA [Suspect]
     Active Substance: ROPINIROLE HYDROCHLORIDE
     Indication: DEMENTIA
     Route: 048
     Dates: start: 2016, end: 201606
  3. STALEVO [Suspect]
     Active Substance: CARBIDOPA\ENTACAPONE\LEVODOPA
     Indication: DEMENTIA
     Dosage: STRENGTH: 150/37.5/200 MG
     Route: 048
     Dates: start: 2016, end: 201606
  4. RAMIPRIL. [Suspect]
     Active Substance: RAMIPRIL
     Indication: HYPERTENSION
     Route: 048
     Dates: start: 2016, end: 201606
  5. EUCREAS [Suspect]
     Active Substance: METFORMIN HYDROCHLORIDE\VILDAGLIPTIN
     Indication: TYPE 2 DIABETES MELLITUS
     Dosage: STRENGTH: 850/50 MG
     Route: 048
     Dates: start: 2016, end: 201606
  6. LYRICA [Suspect]
     Active Substance: PREGABALIN
     Route: 048
     Dates: start: 2016, end: 201606
  7. PLETAL [Suspect]
     Active Substance: CILOSTAZOL
     Route: 048
     Dates: start: 2016, end: 201606

REACTIONS (4)
  - Procedural hypotension [Recovering/Resolving]
  - Atrial fibrillation [Recovering/Resolving]
  - Chest pain [Recovering/Resolving]
  - Renal impairment [Recovering/Resolving]

NARRATIVE: CASE EVENT DATE: 20160527
